FAERS Safety Report 8556470-0 (Version None)
Quarter: 2012Q3

REPORT INFORMATION
  Report Type: 
  Country: None (occurrence: None)
  Receive Date: 20120801
  Receipt Date: 20120730
  Transmission Date: 20120928
  Serious: Yes (Death, Hospitalization)
  Sender: FDA-Public Use
  Company Number: PHEH2012US001480

PATIENT
  Sex: Female
  Weight: 66 kg

DRUGS (7)
  1. HYDROCODONE [Concomitant]
     Indication: PAIN
     Dosage: 10/325 MG
     Route: 048
     Dates: start: 20120201
  2. LASIX [Concomitant]
     Indication: SWELLING
     Dosage: 25 MG, PRN
     Route: 048
     Dates: start: 20111001
  3. LEVOTHYROXINE SODIUM [Concomitant]
     Indication: THYROID DISORDER
     Dosage: 75 MG, DAILY
     Route: 048
     Dates: start: 20100101
  4. XANAX [Concomitant]
     Indication: NAUSEA
     Dosage: 6.5 MG/H, UNK
     Route: 048
     Dates: start: 20120501
  5. IMODIUM [Concomitant]
     Indication: DIARRHOEA
     Dosage: 2 MG, UNK
     Route: 048
     Dates: start: 20100101
  6. AFINITOR [Suspect]
     Indication: RENAL CANCER
     Dosage: 10 MG, DAILY
     Route: 048
     Dates: start: 20100820, end: 20120608
  7. WARFARIN [Concomitant]
     Indication: PLEURAL EFFUSION
     Dosage: 3 G, DAILY
     Dates: start: 20120301

REACTIONS (2)
  - DEATH [None]
  - INTESTINAL OBSTRUCTION [None]
